FAERS Safety Report 6038409-5 (Version None)
Quarter: 2009Q1

REPORT INFORMATION
  Report Type: 
  Country: None (occurrence: None)
  Receive Date: 20090115
  Receipt Date: 20081229
  Transmission Date: 20090719
  Serious: No
  Sender: FDA-Public Use
  Company Number: US-BAYER-200814990BCC

PATIENT
  Sex: Female

DRUGS (2)
  1. ALEVE [Suspect]
     Indication: BACK PAIN
     Dosage: TOTAL DAILY DOSE: 2200 MG  UNIT DOSE: 220 MG
  2. PREDNISONE TAB [Concomitant]
     Dates: start: 20081201

REACTIONS (1)
  - ABDOMINAL PAIN UPPER [None]
